FAERS Safety Report 5571087-8 (Version None)
Quarter: 2007Q4

REPORT INFORMATION
  Report Type: 
  Country: None (occurrence: None)
  Receive Date: 20071221
  Receipt Date: 20071212
  Transmission Date: 20080405
  Serious: Yes (Life-Threatening, Other)
  Sender: FDA-Public Use
  Company Number: US-PURDUE-USA_2007_0030712

PATIENT
  Age: 9 Week
  Sex: Female

DRUGS (2)
  1. OXYCONTIN [Suspect]
     Indication: DRUG USE FOR UNKNOWN INDICATION
     Dates: start: 20070101, end: 20071201
  2. MARIJUANA [Suspect]
     Indication: DRUG USE FOR UNKNOWN INDICATION

REACTIONS (5)
  - CHILD MALTREATMENT SYNDROME [None]
  - INTENTIONAL OVERDOSE [None]
  - MULTIPLE FRACTURES [None]
  - RESPIRATORY FAILURE [None]
  - VICTIM OF CHILD ABUSE [None]
